FAERS Safety Report 10046260 (Version 1)
Quarter: 2014Q1

REPORT INFORMATION
  Report Type: Spontaneous
  Country: US (occurrence: US)
  Receive Date: 20140331
  Receipt Date: 20140331
  Transmission Date: 20141002
  Serious: No
  Sender: FDA-Public Use
  Company Number: US-BIOGENIDEC-2014BI026603

PATIENT
  Age: 56 Year
  Sex: Female

DRUGS (15)
  1. TECFIDERA [Suspect]
     Indication: PRODUCT USED FOR UNKNOWN INDICATION
     Route: 048
  2. SENOKOT [Concomitant]
     Route: 048
  3. GABAPENTIN [Concomitant]
     Route: 048
  4. LAMICTAL [Concomitant]
     Route: 048
  5. METOPROLOL [Concomitant]
     Route: 048
  6. ER LINZESS [Concomitant]
     Route: 048
  7. BISCOLAX [Concomitant]
  8. AMYRA [Concomitant]
     Route: 048
  9. VITAMIN D3 [Concomitant]
     Route: 048
  10. ASPIRIN BUFF [Concomitant]
     Route: 048
  11. RISPERDAL [Concomitant]
     Route: 048
  12. SANTURA [Concomitant]
     Route: 048
  13. CALCIUM [Concomitant]
     Route: 048
  14. COLACE [Concomitant]
     Route: 048
  15. VALACYCLOVIR [Concomitant]
     Route: 048

REACTIONS (2)
  - Palpitations [Unknown]
  - Papilloma viral infection [Unknown]
